FAERS Safety Report 10953215 (Version 2)
Quarter: 2015Q2

REPORT INFORMATION
  Report Type: Report from Study
  Country: CZ (occurrence: CZ)
  Receive Date: 20150325
  Receipt Date: 20150505
  Transmission Date: 20150821
  Serious: Yes (Death, Hospitalization)
  Sender: FDA-Public Use
  Company Number: CZ-PFIZER INC-2014270074

PATIENT
  Sex: Male

DRUGS (1)
  1. SUTENT [Suspect]
     Active Substance: SUNITINIB MALATE
     Indication: RENAL CELL CARCINOMA
     Dosage: 50 MG, ONCE DAILY, 4 WEEKS ON, 2 WEEKS OFF
     Route: 048
     Dates: start: 20140306, end: 20140925

REACTIONS (5)
  - Abdominal pain [Unknown]
  - Disease progression [Fatal]
  - Renal cell carcinoma [Fatal]
  - Ascites [Unknown]
  - Acute respiratory failure [Fatal]

NARRATIVE: CASE EVENT DATE: 2014
